FAERS Safety Report 6341211-8 (Version None)
Quarter: 2009Q3

REPORT INFORMATION
  Report Type: 
  Country: None (occurrence: None)
  Receive Date: 20090904
  Receipt Date: 20090514
  Transmission Date: 20100115
  Serious: No
  Sender: FDA-Public Use
  Company Number: A0785561A

PATIENT

DRUGS (1)
  1. REQUIP [Suspect]
     Indication: RESTLESS LEGS SYNDROME
     Route: 048
     Dates: start: 20060101, end: 20080201

REACTIONS (5)
  - FALL [None]
  - MOTOR DYSFUNCTION [None]
  - QUALITY OF LIFE DECREASED [None]
  - RESTLESS LEGS SYNDROME [None]
  - SLEEP DISORDER [None]
